FAERS Safety Report 8195885-X (Version None)
Quarter: 2012Q1

REPORT INFORMATION
  Report Type: 
  Country: None (occurrence: None)
  Receive Date: 20120308
  Receipt Date: 20120228
  Transmission Date: 20120608
  Serious: Yes (Other)
  Sender: FDA-Public Use
  Company Number: US-ASTRAZENECA-2012SE13883

PATIENT
  Age: 60 Year
  Sex: Female
  Weight: 68 kg

DRUGS (7)
  1. FLAX OIL (OMEGA 3) [Concomitant]
     Indication: CARDIAC DISORDER
     Dosage: 1000 UNKNOWN FREQUENCY
     Route: 048
  2. NEXIUM [Suspect]
     Dosage: 40 MG 4 DAYS A WEEK ONCE DAILY
     Route: 048
  3. DIOVAN HCT [Concomitant]
     Indication: BLOOD PRESSURE ABNORMAL
     Dosage: 160/12.5 UNKNOWN FREQUENCY
     Route: 048
  4. TURMERIC [Concomitant]
     Indication: ARTHRITIS
     Route: 048
  5. NEXIUM [Suspect]
     Indication: GASTROOESOPHAGEAL REFLUX DISEASE
     Route: 048
     Dates: start: 20040101
  6. LYRICA [Concomitant]
     Indication: NEUROPATHY PERIPHERAL
     Route: 048
  7. LYRICA [Concomitant]
     Indication: PRURITUS
     Route: 048

REACTIONS (5)
  - INAPPROPRIATE SCHEDULE OF DRUG ADMINISTRATION [None]
  - OSTEOPENIA [None]
  - PARATHYROID DISORDER [None]
  - PARATHYROID TUMOUR [None]
  - LYME DISEASE [None]
